FAERS Safety Report 4660541-9 (Version None)
Quarter: 2005Q2

REPORT INFORMATION
  Report Type: 
  Country: None (occurrence: None)
  Receive Date: 20050512
  Receipt Date: 20050502
  Transmission Date: 20051028
  Serious: Yes (Life-Threatening, Hospitalization)
  Sender: FDA-Public Use
  Company Number: SG-KINGPHARMUSA00001-K200500578

PATIENT
  Age: 35 Year
  Sex: Male

DRUGS (3)
  1. EPINEPHRINE [Suspect]
     Indication: RESUSCITATION
     Dosage: 10 ML, TWO 1MG BOLUS DOSES
  2. DEXTROSE W/POTASSIUM CHLORIDE [Suspect]
     Indication: THYROTOXIC PERIODIC PARALYSIS
     Route: 042
  3. PROPYLTHIOURACIL [Concomitant]
     Indication: THYROTOXIC PERIODIC PARALYSIS
     Dosage: 200 MG, 8-HOURLY

REACTIONS (6)
  - CARDIAC ENZYMES INCREASED [None]
  - ECHOCARDIOGRAM ABNORMAL [None]
  - EJECTION FRACTION DECREASED [None]
  - HYPOKALAEMIA [None]
  - LOSS OF CONSCIOUSNESS [None]
  - VENTRICULAR ARRHYTHMIA [None]
